FAERS Safety Report 17545559 (Version 2)
Quarter: 2020Q1

REPORT INFORMATION
  Report Type: Spontaneous
  Country: FR (occurrence: FR)
  Receive Date: 20200316
  Receipt Date: 20200319
  Transmission Date: 20200409
  Serious: Yes (Hospitalization, Other)
  Sender: FDA-Public Use
  Company Number: FR-BAYER-2020-044191

PATIENT
  Age: 72 Year
  Weight: 86 kg

DRUGS (1)
  1. GLUCOBAY [Suspect]
     Active Substance: ACARBOSE
     Indication: TYPE 2 DIABETES MELLITUS
     Dosage: 100 MG, TID

REACTIONS (5)
  - Dolichocolon [Unknown]
  - Intestinal obstruction [Unknown]
  - Pneumatosis intestinalis [Unknown]
  - Volvulus [Unknown]
  - Venoocclusive disease [Unknown]

NARRATIVE: CASE EVENT DATE: 20190816
